FAERS Safety Report 6180007-7 (Version None)
Quarter: 2009Q2

REPORT INFORMATION
  Report Type: 
  Country: None (occurrence: None)
  Receive Date: 20090505
  Receipt Date: 20090429
  Transmission Date: 20091009
  Serious: Yes (Life-Threatening)
  Sender: FDA-Public Use
  Company Number: US-WYE-H09134209

PATIENT
  Sex: Male
  Weight: 76.45 kg

DRUGS (5)
  1. TEMSIROLIMUS [Suspect]
     Indication: RENAL CELL CARCINOMA
     Route: 042
     Dates: start: 20090417, end: 20090417
  2. LIPITOR [Concomitant]
  3. FLOMAX [Concomitant]
  4. METOPROLOL TARTRATE [Concomitant]
     Indication: HYPERTENSION
  5. HYDROCHLOROTHIAZIDE [Concomitant]
     Indication: HYPERTENSION

REACTIONS (4)
  - CHEST DISCOMFORT [None]
  - CYANOSIS [None]
  - DYSPNOEA [None]
  - INFUSION RELATED REACTION [None]
